FAERS Safety Report 6986431-4 (Version None)
Quarter: 2010Q3

REPORT INFORMATION
  Report Type: 
  Country: None (occurrence: None)
  Receive Date: 20100915
  Receipt Date: 20090707
  Transmission Date: 20110219
  Serious: Yes (Other)
  Sender: FDA-Public Use
  Company Number: US-WYE-H10032609

PATIENT
  Sex: Female
  Weight: 59.02 kg

DRUGS (3)
  1. PRISTIQ [Suspect]
     Indication: DEPRESSION
     Route: 048
     Dates: start: 20081101, end: 20090312
  2. PRISTIQ [Suspect]
     Indication: ANXIETY
  3. AMBIEN [Concomitant]
     Indication: INSOMNIA
     Dosage: UNKNOWN

REACTIONS (2)
  - ARTHRALGIA [None]
  - CONVULSION [None]
